FAERS Safety Report 7434754-7 (Version None)
Quarter: 2011Q2

REPORT INFORMATION
  Report Type: 
  Country: None (occurrence: None)
  Receive Date: 20110425
  Receipt Date: 20110414
  Transmission Date: 20111010
  Serious: Yes (Other)
  Sender: FDA-Public Use
  Company Number: DE-BAXTER-2011BH008193

PATIENT
  Age: 69 Year
  Sex: Male
  Weight: 78 kg

DRUGS (4)
  1. EXTRANEAL [Suspect]
     Indication: DIABETIC NEPHROPATHY
     Route: 033
     Dates: start: 20070712, end: 20101116
  2. EXTRANEAL [Suspect]
     Route: 033
     Dates: start: 20100101
  3. EXTRANEAL [Suspect]
     Indication: PERITONEAL DIALYSIS
     Route: 033
     Dates: start: 20070712, end: 20101116
  4. EXTRANEAL [Suspect]
     Route: 033
     Dates: start: 20100101

REACTIONS (2)
  - PERIPHERAL ARTERIAL OCCLUSIVE DISEASE [None]
  - IMPAIRED HEALING [None]
